FAERS Safety Report 5932141-1 (Version None)
Quarter: 2008Q4

REPORT INFORMATION
  Report Type: 
  Country: None (occurrence: None)
  Receive Date: 20081027
  Receipt Date: 20081027
  Transmission Date: 20090506
  Serious: Yes (Life-Threatening)
  Sender: FDA-Public Use
  Company Number: None

PATIENT
  Age: 33 Year
  Sex: Female
  Weight: 65.318 kg

DRUGS (1)
  1. MIRENA [Suspect]
     Indication: CONTRACEPTION
     Dosage: PROGESTIN
     Dates: start: 20070116, end: 20081026

REACTIONS (6)
  - ANXIETY [None]
  - DEPRESSION [None]
  - FATIGUE [None]
  - NAUSEA [None]
  - PARAESTHESIA [None]
  - PREMATURE MENOPAUSE [None]
